FAERS Safety Report 20849585 (Version 1)
Quarter: 2022Q2

REPORT INFORMATION
  Report Type: Spontaneous
  Country: RU (occurrence: RU)
  Receive Date: 20220519
  Receipt Date: 20220519
  Transmission Date: 20220720
  Serious: Yes (Other)
  Sender: FDA-Public Use
  Company Number: RU-TEVA-2022-RU-2038045

PATIENT
  Age: 29 Year
  Sex: Male

DRUGS (1)
  1. CARBAMAZEPINE [Suspect]
     Active Substance: CARBAMAZEPINE
     Indication: Product used for unknown indication
     Route: 065

REACTIONS (9)
  - Seizure [Unknown]
  - Epilepsy [Unknown]
  - Adverse drug reaction [Unknown]
  - Drug resistance [Unknown]
  - Alopecia [Unknown]
  - Pruritus [Unknown]
  - Sleep disorder [Unknown]
  - Headache [Unknown]
  - Chronic cheek biting [Unknown]
